FAERS Safety Report 12471118 (Version 1)
Quarter: 2016Q2

REPORT INFORMATION
  Report Type: Spontaneous
  Country: US (occurrence: US)
  Receive Date: 20160616
  Receipt Date: 20160616
  Transmission Date: 20160815
  Serious: No
  Sender: FDA-Public Use
  Company Number: US-TAKEDA-2016TUS009758

PATIENT
  Sex: Male
  Weight: 71.2 kg

DRUGS (9)
  1. LINZESS [Concomitant]
     Active Substance: LINACLOTIDE
     Dosage: 145 ?G, QD
     Route: 048
  2. ROZEREM [Suspect]
     Active Substance: RAMELTEON
     Indication: INSOMNIA
     Dosage: 8 MG, QD
     Route: 048
     Dates: start: 20150115
  3. ZOLPIDEM [Concomitant]
     Active Substance: ZOLPIDEM\ZOLPIDEM TARTRATE
     Indication: INSOMNIA
     Dosage: 10 MG, BID
     Route: 048
  4. ZOLPIDEM [Concomitant]
     Active Substance: ZOLPIDEM\ZOLPIDEM TARTRATE
     Dosage: 5 MG, BID
     Route: 048
  5. OXYCONTIN [Concomitant]
     Active Substance: OXYCODONE HYDROCHLORIDE
     Indication: NEUROPATHY PERIPHERAL
     Dosage: 15 MG, BID
     Route: 048
     Dates: start: 20150115
  6. HYDROMORPHONE [Concomitant]
     Active Substance: HYDROMORPHONE
     Indication: NEUROPATHY PERIPHERAL
     Dosage: 8 MG, Q6HR
     Route: 048
     Dates: start: 20150115
  7. NIMODIPINE. [Concomitant]
     Active Substance: NIMODIPINE
     Dosage: 30 MG, QID
     Route: 048
     Dates: start: 20150115
  8. SONATA                             /00061001/ [Concomitant]
     Indication: NEUROPATHY PERIPHERAL
     Dosage: 5 MG, QD
     Route: 048
     Dates: start: 20150115
  9. LYRICA [Concomitant]
     Active Substance: PREGABALIN
     Dosage: 300 MG, BID
     Route: 048
     Dates: start: 20150115

REACTIONS (1)
  - Drug ineffective [Unknown]
